FAERS Safety Report 12961877 (Version 1)
Quarter: 2016Q4

REPORT INFORMATION
  Report Type: Spontaneous
  Country: US (occurrence: US)
  Receive Date: 20161121
  Receipt Date: 20161121
  Transmission Date: 20170207
  Serious: No
  Sender: FDA-Public Use
  Company Number: US-OSMOTICA_PHARMACEUTICAL_US_LLC-POI0573201600059

PATIENT
  Age: 25 Year
  Sex: Female
  Weight: 77.18 kg

DRUGS (2)
  1. DIVIGEL [Suspect]
     Active Substance: ESTRADIOL
     Indication: OESTROGEN REPLACEMENT THERAPY
     Route: 062
     Dates: start: 20151003, end: 20151003
  2. BIRTH CONTROL [Concomitant]
     Active Substance: UNSPECIFIED INGREDIENT

REACTIONS (5)
  - Rash macular [None]
  - Urticaria [Recovered/Resolved]
  - Skin discolouration [None]
  - Skin irritation [None]
  - Pruritus [None]

NARRATIVE: CASE EVENT DATE: 20151003
